FAERS Safety Report 13380631 (Version 1)
Quarter: 2017Q1

REPORT INFORMATION
  Report Type: Spontaneous
  Country: US (occurrence: US)
  Receive Date: 20170329
  Receipt Date: 20170329
  Transmission Date: 20170429
  Serious: Yes (Death, Hospitalization, Other)
  Sender: FDA-Public Use
  Company Number: US-ACCORD-049548

PATIENT
  Age: 55 Year
  Sex: Male

DRUGS (5)
  1. QUETIAPINE/QUETIAPINE FUMARATE [Concomitant]
     Indication: SCHIZOAFFECTIVE DISORDER BIPOLAR TYPE
  2. DOCUSATE SODIUM/SENNOSIDE A+B [Concomitant]
     Indication: SCHIZOAFFECTIVE DISORDER BIPOLAR TYPE
     Dosage: DOCUSATE 50MG/SENNOSIDES 8.6MG
  3. BENZATROPINE/BENZATROPINE MESILATE [Concomitant]
     Indication: SCHIZOAFFECTIVE DISORDER BIPOLAR TYPE
  4. MACROGOL/MACROGOL STEARATE [Concomitant]
  5. CLOZAPINE. [Suspect]
     Active Substance: CLOZAPINE
     Indication: SCHIZOAFFECTIVE DISORDER BIPOLAR TYPE

REACTIONS (5)
  - Faecaloma [Fatal]
  - Constipation [Fatal]
  - Cardio-respiratory arrest [Fatal]
  - Aspiration [Fatal]
  - Gastric dilatation [Fatal]
